FAERS Safety Report 22784547 (Version 2)
Quarter: 2024Q1

REPORT INFORMATION
  Report Type: Spontaneous
  Country: US (occurrence: US)
  Receive Date: 20230804
  Receipt Date: 20240124
  Transmission Date: 20240409
  Serious: No
  Sender: FDA-Public Use
  Company Number: US-SA-SAC20230803000102

PATIENT
  Age: 77 Year
  Sex: Female

DRUGS (3)
  1. CEREZYME [Suspect]
     Active Substance: IMIGLUCERASE
     Indication: Gaucher^s disease
     Dosage: 5600 U, QOW
     Route: 042
     Dates: start: 201710
  2. SODIUM CHLORIDE [Concomitant]
     Active Substance: SODIUM CHLORIDE
     Dosage: 10 ML
  3. STERILE WATER [Concomitant]
     Active Substance: WATER
     Dosage: 50 ML

REACTIONS (2)
  - Urinary tract infection [Unknown]
  - Poor venous access [Unknown]
